FAERS Safety Report 10375955 (Version 1)
Quarter: 2014Q3

REPORT INFORMATION
  Report Type: Spontaneous
  Country: US (occurrence: None)
  Receive Date: 20140731
  Receipt Date: 20140731
  Transmission Date: 20150326
  Serious: No
  Sender: FDA-Public Use
  Company Number: 1713747-2013-00012

PATIENT
  Age: 52 Year
  Sex: Female
  Weight: 46.4 kg

DRUGS (5)
  1. 0.9% SODIUM CHLORIDE INJECTION [Suspect]
     Active Substance: SODIUM CHLORIDE
     Indication: HAEMODIALYSIS
  2. OPTIFLUX DIALYZER [Concomitant]
  3. NATURALYTE [Concomitant]
     Active Substance: ACETIC ACID\SODIUM ACETATE
  4. FRESENIUS 2008K2 [Concomitant]
  5. COMBISET BLOODLINES [Concomitant]

REACTIONS (3)
  - Dialysis related complication [None]
  - Blood pressure diastolic increased [None]
  - Upper respiratory tract infection [None]

NARRATIVE: CASE EVENT DATE: 20130508
